FAERS Safety Report 4391267-7 (Version None)
Quarter: 2004Q2

REPORT INFORMATION
  Report Type: 
  Country: None (occurrence: None)
  Receive Date: 20040621
  Receipt Date: 20031212
  Transmission Date: 20050107
  Serious: Yes (Other)
  Sender: FDA-Public Use
  Company Number: USA-2003-0006109

PATIENT
  Age: 36 Year
  Sex: Male
  Weight: 99.3 kg

DRUGS (13)
  1. OXYCONTIN [Suspect]
     Dosage: 20 MG, DAILY, ORAL
     Route: 048
  2. OXYIR [Concomitant]
  3. NEURONTIN [Concomitant]
  4. SERZONE [Concomitant]
  5. VIOXX [Concomitant]
  6. PRILOSEC [Concomitant]
  7. SKELAXIN [Concomitant]
  8. DECADRON [Concomitant]
  9. TYLOX [Concomitant]
  10. CELEXA [Concomitant]
  11. ZANAFLEX [Concomitant]
  12. FLOMAX [Concomitant]
  13. ZOCOR [Concomitant]

REACTIONS (24)
  - ABDOMINAL DISTENSION [None]
  - ANXIETY [None]
  - ARTHRALGIA [None]
  - ASTHENIA [None]
  - CHEST PAIN [None]
  - COLD SWEAT [None]
  - COUGH [None]
  - DEPRESSION [None]
  - DRUG DEPENDENCE [None]
  - DRUG WITHDRAWAL SYNDROME [None]
  - DYSPNOEA [None]
  - DYSURIA [None]
  - FALL [None]
  - HAND FRACTURE [None]
  - HYPERHIDROSIS [None]
  - JOINT SWELLING [None]
  - LOSS OF CONSCIOUSNESS [None]
  - MUSCLE SPASMS [None]
  - NAUSEA [None]
  - PAIN [None]
  - PYREXIA [None]
  - SINUS CONGESTION [None]
  - SINUSITIS [None]
  - SOMNOLENCE [None]
